FAERS Safety Report 9289232 (Version 1)
Quarter: 2013Q2

REPORT INFORMATION
  Report Type: Spontaneous
  Country: US (occurrence: None)
  Receive Date: 20130510
  Receipt Date: 20130510
  Transmission Date: 20140414
  Serious: Yes (Hospitalization)
  Sender: FDA-Public Use
  Company Number: BACL20130003

PATIENT
  Age: 17 Year
  Sex: Female

DRUGS (2)
  1. BACLOFEN [Suspect]
     Route: 048
     Dates: end: 201212
  2. BOTULINUM TOXIN (BOTULINUM TOXIN TYPE A) (INJECTION) (BOTULINUM TOXIN TYPE A) [Concomitant]

REACTIONS (12)
  - Aggression [None]
  - Insomnia [None]
  - Abnormal behaviour [None]
  - Hallucinations, mixed [None]
  - Delusion [None]
  - Pressure of speech [None]
  - Screaming [None]
  - Psychotic disorder [None]
  - Major depression [None]
  - Bipolar I disorder [None]
  - Agitation [None]
  - Toxicity to various agents [None]
